FAERS Safety Report 6636192-3 (Version None)
Quarter: 2010Q1

REPORT INFORMATION
  Report Type: 
  Country: None (occurrence: None)
  Receive Date: 20100316
  Receipt Date: 20100303
  Transmission Date: 20100710
  Serious: Yes (Hospitalization, Disabling)
  Sender: FDA-Public Use
  Company Number: US-ELI_LILLY_AND_COMPANY-US200911005918

PATIENT
  Sex: Female
  Weight: 97.052 kg

DRUGS (9)
  1. ZYPREXA [Suspect]
     Dosage: 10 MG, DAILY (1/D)
     Dates: start: 19961220
  2. ZYPREXA [Suspect]
     Dosage: 30 MG, DAILY (1/D)
     Dates: start: 19971229
  3. ZYPREXA [Suspect]
     Dosage: 15 MG, DAILY (1/D)
     Dates: start: 20090622
  4. ABILIFY [Concomitant]
     Dosage: UNK D/F, UNKNOWN
     Dates: start: 20080501
  5. GEODON [Concomitant]
     Dosage: UNK D/F, UNKNOWN
     Dates: start: 20060101, end: 20060501
  6. TRIFLUOPERAZINE [Concomitant]
     Dosage: UNK D/F, UNKNOWN
     Dates: start: 19930101, end: 19960101
  7. BUPROPION HCL [Concomitant]
     Dosage: UNK D/F, UNKNOWN
     Dates: start: 19970201, end: 20020701
  8. EFFEXOR [Concomitant]
     Dosage: UNK D/F, UNKNOWN
     Dates: start: 20020101
  9. LABETALOL HCL [Concomitant]
     Dosage: UNK D/F, UNKNOWN
     Dates: start: 20040101

REACTIONS (6)
  - CARDIAC DISORDER [None]
  - DIABETES MELLITUS [None]
  - HYPERTENSION [None]
  - OVERDOSE [None]
  - PANCREATITIS [None]
  - WEIGHT INCREASED [None]
